FAERS Safety Report 25370025 (Version 1)
Quarter: 2025Q2

REPORT INFORMATION
  Report Type: Spontaneous
  Country: ES (occurrence: ES)
  Receive Date: 20250528
  Receipt Date: 20250528
  Transmission Date: 20250716
  Serious: Yes (Other)
  Sender: PFIZER
  Company Number: ES-PFIZER INC-PV202500064237

PATIENT
  Sex: Male

DRUGS (1)
  1. RITLECITINIB [Suspect]
     Active Substance: RITLECITINIB
     Indication: Alopecia areata

REACTIONS (3)
  - Renal failure [Recovered/Resolved]
  - Condition aggravated [Recovered/Resolved]
  - Proteinuria [Recovered/Resolved]
